FAERS Safety Report 6143347-3 (Version None)
Quarter: 2009Q2

REPORT INFORMATION
  Report Type: 
  Country: None (occurrence: None)
  Receive Date: 20090403
  Receipt Date: 20090327
  Transmission Date: 20091009
  Serious: Yes (Other)
  Sender: FDA-Public Use
  Company Number: B0568126A

PATIENT
  Age: 57 Year
  Sex: Female

DRUGS (1)
  1. AUGMENTIN '125' [Suspect]
     Indication: SINUSITIS
     Route: 048
     Dates: start: 20080701

REACTIONS (4)
  - ANGIOEDEMA [None]
  - ERYTHEMA [None]
  - LARYNGEAL OEDEMA [None]
  - PRURITUS [None]
